FAERS Safety Report 21758458 (Version 1)
Quarter: 2022Q4

REPORT INFORMATION
  Report Type: Spontaneous
  Country: US (occurrence: None)
  Receive Date: 20221221
  Receipt Date: 20221221
  Transmission Date: 20230112
  Serious: No
  Sender: FDA-Public Use
  Company Number: 2022A385256

PATIENT
  Sex: Female
  Weight: 108 kg

DRUGS (5)
  1. BYDUREON BCISE [Suspect]
     Active Substance: EXENATIDE
     Indication: Diabetes mellitus
     Route: 058
  2. LANTUS [Concomitant]
     Active Substance: INSULIN GLARGINE
     Dosage: DROPPED FROM 72 UNITS TWICE A DAY TO 40 UNITS DAILY, TO 30 UNITS DAILY
     Dates: start: 20220730
  3. LANTUS [Concomitant]
     Active Substance: INSULIN GLARGINE
     Dosage: 24 UNITS
     Dates: start: 20220726
  4. LANTUS [Concomitant]
     Active Substance: INSULIN GLARGINE
     Dosage: 22 UNITS
     Dates: start: 20220920
  5. INSULIN NOS [Concomitant]
     Active Substance: INSULIN NOS
     Dosage: 40 UNITS

REACTIONS (14)
  - Blood cholesterol increased [Unknown]
  - Weight increased [Unknown]
  - Weight abnormal [Unknown]
  - Nervousness [Unknown]
  - Asthenia [Unknown]
  - Carpal tunnel syndrome [Unknown]
  - Nerve compression [Unknown]
  - Hypertension [Unknown]
  - Weight decreased [Not Recovered/Not Resolved]
  - Somnolence [Unknown]
  - Device use issue [Unknown]
  - Drug dose omission by device [Unknown]
  - Device delivery system issue [Unknown]
  - Device leakage [Unknown]
